FAERS Safety Report 14757218 (Version 1)
Quarter: 2018Q2

REPORT INFORMATION
  Report Type: Spontaneous
  Country: US (occurrence: US)
  Receive Date: 20180408
  Receipt Date: 20180408
  Transmission Date: 20180711
  Serious: Yes (Other)
  Sender: FDA-Public Use
  Company Number: None

PATIENT
  Age: 84 Year
  Sex: Male
  Weight: 75.15 kg

DRUGS (6)
  1. CIPROFLOXACIN. [Suspect]
     Active Substance: CIPROFLOXACIN
     Indication: PROSTATITIS
     Route: 048
     Dates: start: 20180306, end: 20180315
  2. METOPROLOL. [Concomitant]
     Active Substance: METOPROLOL
     Dates: start: 20040401
  3. RAPAFLO [Concomitant]
     Active Substance: SILODOSIN
     Dates: start: 20170712, end: 20180329
  4. ASA [Concomitant]
     Active Substance: ASPIRIN
     Dates: start: 20080401
  5. ANDROGEL [Concomitant]
     Active Substance: TESTOSTERONE
     Dates: start: 20080401
  6. CIPROFLOXACIN. [Suspect]
     Active Substance: CIPROFLOXACIN
     Indication: URINARY TRACT INFECTION
     Route: 048
     Dates: start: 20180306, end: 20180315

REACTIONS (5)
  - Headache [None]
  - Temporomandibular joint syndrome [None]
  - Myalgia [None]
  - Paraesthesia [None]
  - Pyrexia [None]

NARRATIVE: CASE EVENT DATE: 20180306
